FAERS Safety Report 4636276-5 (Version None)
Quarter: 2005Q2

REPORT INFORMATION
  Report Type: 
  Country: None (occurrence: None)
  Receive Date: 20050415
  Receipt Date: 20040513
  Transmission Date: 20051028
  Serious: Yes (Other)
  Sender: FDA-Public Use
  Company Number: US-BRISTOL-MYERS SQUIBB COMPANY-12586814

PATIENT
  Age: 62 Year
  Sex: Female

DRUGS (5)
  1. CARBOPLATIN [Suspect]
     Route: 042
     Dates: start: 20040123, end: 20040123
  2. TAXOTERE [Suspect]
     Route: 042
     Dates: start: 20040123, end: 20040123
  3. BENADRYL [Concomitant]
     Indication: PREMEDICATION
     Dates: start: 20040123, end: 20040123
  4. CIMETIDINE [Concomitant]
     Indication: PREMEDICATION
     Dates: start: 20040123, end: 20040123
  5. DECADRON [Concomitant]
     Indication: PREMEDICATION
     Dates: start: 20040123, end: 20040123

REACTIONS (2)
  - BLOOD PRESSURE DECREASED [None]
  - DIZZINESS [None]
